FAERS Safety Report 14922885 (Version 1)
Quarter: 2018Q2

REPORT INFORMATION
  Report Type: Spontaneous
  Country: US (occurrence: US)
  Receive Date: 20180503
  Receipt Date: 20180503
  Transmission Date: 20180711
  Serious: Yes (Other)
  Sender: FDA-Public Use
  Company Number: None

PATIENT
  Age: 76 Year
  Sex: Female
  Weight: 96.75 kg

DRUGS (1)
  1. TRAMADOL 50MG TABLETS [Suspect]
     Active Substance: TRAMADOL HYDROCHLORIDE
     Indication: PAIN
     Dosage: ?          QUANTITY:2 TABLET(S);?
     Route: 048

REACTIONS (2)
  - Incorrect dose administered [None]
  - Dyspnoea [None]

NARRATIVE: CASE EVENT DATE: 20171215
